FAERS Safety Report 8659200 (Version 3)
Quarter: 2012Q4

REPORT INFORMATION
  Report Type: 
  Country: US (occurrence: US)
  Receive Date: 20120711
  Receipt Date: 20120913
  Transmission Date: 20130627
  Serious: Yes (Hospitalization, Other)
  Sender: FDA-Public Use
  Company Number: PHEH2012US013278

PATIENT
  Sex: Female

DRUGS (2)
  1. VOLTAREN [Suspect]
     Indication: PAIN
     Dosage: 3 times a day
  2. GLUCOSAMINE [Concomitant]

REACTIONS (5)
  - Bipolar I disorder [Unknown]
  - Bipolar disorder [Unknown]
  - Osteoarthritis [Unknown]
  - Constipation [Unknown]
  - Drug ineffective [Unknown]
